FAERS Safety Report 14426940 (Version 1)
Quarter: 2018Q1

REPORT INFORMATION
  Report Type: Report from Study
  Country: ES (occurrence: ES)
  Receive Date: 20180123
  Receipt Date: 20180123
  Transmission Date: 20180509
  Serious: Yes (Hospitalization, Disabling)
  Sender: FDA-Public Use
  Company Number: ES-EISAI MEDICAL RESEARCH-E7080-00870-CLI-ES

PATIENT
  Age: 76 Year
  Sex: Female
  Weight: 54 kg

DRUGS (2)
  1. LENVATINIB [Suspect]
     Active Substance: LENVATINIB
     Route: 048
     Dates: start: 20120417, end: 20120717
  2. LENVATINIB [Suspect]
     Active Substance: LENVATINIB
     Indication: THYROID CANCER
     Route: 048
     Dates: start: 20120118, end: 20120416

REACTIONS (1)
  - Dysphagia [Not Recovered/Not Resolved]

NARRATIVE: CASE EVENT DATE: 20120710
